FAERS Safety Report 17524803 (Version 1)
Quarter: 2020Q1

REPORT INFORMATION
  Report Type: Report from Study
  Country: IL (occurrence: IL)
  Receive Date: 20200311
  Receipt Date: 20200311
  Transmission Date: 20200409
  Serious: Yes (Hospitalization)
  Sender: FDA-Public Use
  Company Number: NVSC2020IL039800

PATIENT
  Age: 18 Year
  Sex: Male

DRUGS (1)
  1. COSENTYX [Suspect]
     Active Substance: SECUKINUMAB
     Indication: PSORIASIS
     Dosage: 300 MG, QW
     Route: 058
     Dates: start: 20200202

REACTIONS (6)
  - Gait disturbance [Recovering/Resolving]
  - Concomitant disease aggravated [Recovered/Resolved]
  - Psoriasis [Recovering/Resolving]
  - Pharyngitis streptococcal [Recovered/Resolved]
  - Pruritus [Recovering/Resolving]
  - Erythema [Recovering/Resolving]

NARRATIVE: CASE EVENT DATE: 20200207
